FAERS Safety Report 18116900 (Version 1)
Quarter: 2020Q3

REPORT INFORMATION
  Report Type: Report from Study
  Country: US (occurrence: US)
  Receive Date: 20200806
  Receipt Date: 20200806
  Transmission Date: 20201103
  Serious: Yes (Hospitalization, Other)
  Sender: FDA-Public Use
  Company Number: US-GILEAD-2020-0488784

PATIENT
  Age: 19 Year
  Sex: Female

DRUGS (2)
  1. BETHKIS [Concomitant]
     Active Substance: TOBRAMYCIN
     Dosage: UNK
  2. AZTREONAM LYSINE [Suspect]
     Active Substance: AZTREONAM LYSINE
     Indication: CYSTIC FIBROSIS
     Dosage: 75 MG, TID, EVERY OTHER MONTH
     Route: 055

REACTIONS (6)
  - Cystic fibrosis [Unknown]
  - Pseudomonas infection [Unknown]
  - Staphylococcal infection [Unknown]
  - Nephrolithiasis [Unknown]
  - Intestinal obstruction [Unknown]
  - Burkholderia cepacia complex infection [Not Recovered/Not Resolved]

NARRATIVE: CASE EVENT DATE: 202003
